FAERS Safety Report 6162503-1 (Version None)
Quarter: 2009Q2

REPORT INFORMATION
  Report Type: 
  Country: None (occurrence: None)
  Receive Date: 20090417
  Receipt Date: 20090403
  Transmission Date: 20091009
  Serious: Yes (Life-Threatening)
  Sender: FDA-Public Use
  Company Number: 238784

PATIENT
  Age: 73 Year
  Sex: Female

DRUGS (1)
  1. ANZATAX INJECTION CONCENTRATE (PACLITAXEL) [Suspect]
     Indication: BREAST CANCER
     Dosage: 130 MG, INTRAVENOUS
     Route: 042
     Dates: start: 20090327, end: 20090327

REACTIONS (2)
  - HYPERSENSITIVITY [None]
  - HYPERTENSIVE CRISIS [None]
